FAERS Safety Report 25100418 (Version 4)
Quarter: 2025Q2

REPORT INFORMATION
  Report Type: Spontaneous
  Country: US (occurrence: US)
  Receive Date: 20250320
  Receipt Date: 20250520
  Transmission Date: 20250717
  Serious: No
  Sender: PFIZER
  Company Number: US-PFIZER INC-202500057929

PATIENT
  Age: 78 Year
  Sex: Female

DRUGS (19)
  1. IBRANCE [Suspect]
     Active Substance: PALBOCICLIB
     Indication: Breast cancer female
     Route: 048
     Dates: start: 20241226, end: 20250122
  2. IBRANCE [Suspect]
     Active Substance: PALBOCICLIB
     Route: 048
  3. METFORMIN [Concomitant]
     Active Substance: METFORMIN HYDROCHLORIDE
  4. NOVOLOG [Concomitant]
     Active Substance: INSULIN ASPART
  5. TIMOLOL MALEATE [Concomitant]
     Active Substance: TIMOLOL MALEATE
  6. LORATADINE [Concomitant]
     Active Substance: LORATADINE
  7. ASPIRIN [Concomitant]
     Active Substance: ASPIRIN
  8. TYLENOL [Concomitant]
     Active Substance: ACETAMINOPHEN
  9. CHLORTHALIDONE [Concomitant]
     Active Substance: CHLORTHALIDONE
  10. METOPROLOL [Concomitant]
     Active Substance: METOPROLOL
  11. DOCUSATE SODIUM [Concomitant]
     Active Substance: DOCUSATE SODIUM
  12. ATORVASTATIN [Concomitant]
     Active Substance: ATORVASTATIN
  13. FUROSEMIDE [Concomitant]
     Active Substance: FUROSEMIDE
  14. LEVOTHYROXINE [Concomitant]
     Active Substance: LEVOTHYROXINE
  15. LOSARTAN [Concomitant]
     Active Substance: LOSARTAN
  16. MEGESTROL ACETATE [Concomitant]
     Active Substance: MEGESTROL ACETATE
  17. NORVASC [Concomitant]
     Active Substance: AMLODIPINE BESYLATE
  18. LATANOPROST [Concomitant]
     Active Substance: LATANOPROST
  19. ELIQUIS [Concomitant]
     Active Substance: APIXABAN

REACTIONS (5)
  - White blood cell count decreased [Unknown]
  - Cough [Unknown]
  - Dry mouth [Unknown]
  - Nausea [Unknown]
  - Weight decreased [Unknown]
